FAERS Safety Report 8388419-8 (Version None)
Quarter: 2012Q2

REPORT INFORMATION
  Report Type: 
  Country: None (occurrence: None)
  Receive Date: 20120525
  Receipt Date: 20120412
  Transmission Date: 20120825
  Serious: Yes (Hospitalization)
  Sender: FDA-Public Use
  Company Number: IT-ASTRAZENECA-2012SE24149

PATIENT
  Age: 49 Year
  Sex: Female

DRUGS (1)
  1. ZOMIG [Suspect]
     Indication: HEADACHE
     Route: 048
     Dates: start: 20110901, end: 20110906

REACTIONS (4)
  - TRANSAMINASES INCREASED [None]
  - BLOOD PRESSURE INCREASED [None]
  - HEADACHE [None]
  - NAUSEA [None]
